FAERS Safety Report 5659421-1 (Version None)
Quarter: 2008Q1

REPORT INFORMATION
  Report Type: 
  Country: None (occurrence: None)
  Receive Date: 20080311
  Receipt Date: 20080218
  Transmission Date: 20080703
  Serious: Yes (Other)
  Sender: FDA-Public Use
  Company Number: GB-RANBAXY-2008RR-12993

PATIENT

DRUGS (1)
  1. FLUOXETINE [Suspect]
     Dosage: 20 MG, QD
     Route: 064
     Dates: end: 20070911

REACTIONS (3)
  - DRUG WITHDRAWAL SYNDROME NEONATAL [None]
  - FLUSHING [None]
  - HYPERHIDROSIS [None]
